FAERS Safety Report 21920506 (Version 1)
Quarter: 2023Q1

REPORT INFORMATION
  Report Type: Spontaneous
  Country: AU (occurrence: AU)
  Receive Date: 20230127
  Receipt Date: 20230127
  Transmission Date: 20230418
  Serious: Yes (Other)
  Sender: FDA-Public Use
  Company Number: AU-BRISTOL-MYERS SQUIBB COMPANY-2023-010854

PATIENT
  Age: 61 Year
  Sex: Male

DRUGS (2)
  1. NIVOLUMAB [Suspect]
     Active Substance: NIVOLUMAB
     Indication: Sarcomatoid mesothelioma
     Dosage: EVERY 2 WEEKS
  2. PREDNISOLONE [Concomitant]
     Active Substance: PREDNISOLONE
     Indication: Sarcomatoid mesothelioma
     Dosage: LONG-TERM PREDNISOLONE 2.5 MG DAILY

REACTIONS (2)
  - Immunoglobulin G4 related disease [Unknown]
  - Autoimmune pancreatitis [Unknown]
